FAERS Safety Report 25130232 (Version 1)
Quarter: 2025Q1

REPORT INFORMATION
  Report Type: Spontaneous
  Country: US (occurrence: US)
  Receive Date: 20250327
  Receipt Date: 20250327
  Transmission Date: 20250408
  Serious: No
  Sender: ESPERION THERAPEUTICS
  Company Number: US-ESPERIONTHERAPEUTICS-2024USA00774

PATIENT

DRUGS (2)
  1. NEXLIZET [Interacting]
     Active Substance: BEMPEDOIC ACID\EZETIMIBE
     Indication: Product used for unknown indication
     Route: 065
  2. HYDROGEN PEROXIDE [Interacting]
     Active Substance: HYDROGEN PEROXIDE
     Indication: Product used for unknown indication
     Route: 065

REACTIONS (3)
  - Drug interaction [Unknown]
  - Lip swelling [Unknown]
  - Hypersensitivity [Unknown]
